FAERS Safety Report 23984800 (Version 2)
Quarter: 2024Q3

REPORT INFORMATION
  Report Type: Report from Study
  Country: US (occurrence: US)
  Receive Date: 20240618
  Receipt Date: 20240702
  Transmission Date: 20241016
  Serious: Yes (Hospitalization)
  Sender: AMNEAL
  Company Number: US-AMNEAL PHARMACEUTICALS-2024-AMRX-00711

PATIENT
  Sex: Male
  Weight: 77.098 kg

DRUGS (5)
  1. CARBIDOPA\LEVODOPA [Suspect]
     Active Substance: CARBIDOPA\LEVODOPA
     Indication: Parkinson^s disease
     Dosage: (36.25/145 MG) 16 CAPSULES PER DAY
     Route: 048
  2. CARBIDOPA\LEVODOPA [Suspect]
     Active Substance: CARBIDOPA\LEVODOPA
     Dosage: 2 ((36.25-145 MG) CAPSULES, 1X/DAY
     Route: 048
     Dates: start: 20230502
  3. CARBIDOPA\LEVODOPA [Suspect]
     Active Substance: CARBIDOPA\LEVODOPA
     Dosage: 61.25-245MG (TAKE 1 CAPSULE BY MOUTH IN THE MORNING AND 1 CAPSULE BY MOUTH IN THE EVENING AND 1 CAPS
     Route: 048
     Dates: start: 20230912
  4. CARBIDOPA\LEVODOPA [Suspect]
     Active Substance: CARBIDOPA\LEVODOPA
     Dosage: 3 (61.25 MG/245 MG) CAPSULES, 5 /DAY
     Route: 048
  5. SINEMET [Suspect]
     Active Substance: CARBIDOPA\LEVODOPA
     Indication: Parkinson^s disease
     Dosage: UNK
     Route: 065

REACTIONS (3)
  - Fall [Unknown]
  - Movement disorder [Unknown]
  - Tremor [Unknown]
